FAERS Safety Report 7284146-9 (Version None)
Quarter: 2011Q1

REPORT INFORMATION
  Report Type: 
  Country: None (occurrence: None)
  Receive Date: 20110209
  Receipt Date: 20100705
  Transmission Date: 20110831
  Serious: No
  Sender: FDA-Public Use
  Company Number: US-PFIZER INC-2010084243

PATIENT
  Sex: Male
  Weight: 62.585 kg

DRUGS (9)
  1. GEODON [Suspect]
     Indication: CONFUSIONAL STATE
  2. ZOSYN [Concomitant]
     Indication: PNEUMONIA
     Dosage: PIPERACILLIN / TAZOBACTAM 4.5 G EVERY 8 HOURLY
     Route: 042
  3. GEODON [Suspect]
     Indication: AGITATION
     Dosage: 15 MG EVERY 6 HOURS, AS NEEDED
     Route: 030
     Dates: start: 20100705, end: 20100705
  4. CETIRIZINE [Concomitant]
     Dosage: 10 MG, DAILY
  5. GEODON [Suspect]
     Indication: AGGRESSION
  6. LEXAPRO [Concomitant]
     Dosage: 10 MG, DAILY
  7. VANCOMYCIN [Concomitant]
     Indication: PNEUMONIA
     Dosage: 1 G, DAILY
     Route: 042
  8. POTASSIUM CHLORIDE [Concomitant]
     Dosage: 40 MEQ, DAILY
  9. ATIVAN [Concomitant]
     Dosage: 1 MG, UNK
     Route: 048

REACTIONS (4)
  - HAEMATOCRIT DECREASED [None]
  - BLOOD PRESSURE FLUCTUATION [None]
  - HAEMOGLOBIN DECREASED [None]
  - WRONG TECHNIQUE IN DRUG USAGE PROCESS [None]
